FAERS Safety Report 7732492-4 (Version None)
Quarter: 2011Q3

REPORT INFORMATION
  Report Type: 
  Country: None (occurrence: None)
  Receive Date: 20110906
  Receipt Date: 20110825
  Transmission Date: 20111222
  Serious: Yes (Other)
  Sender: FDA-Public Use
  Company Number: US-ASTRAZENECA-2011SE28117

PATIENT
  Age: 20211 Day
  Sex: Male

DRUGS (2)
  1. BENICAR [Concomitant]
     Indication: HYPERTENSION
     Route: 048
     Dates: start: 20110318
  2. CRESTOR [Suspect]
     Indication: HYPERTENSION
     Route: 048
     Dates: start: 20110331, end: 20110404

REACTIONS (2)
  - GINGIVAL BLEEDING [None]
  - TOOTH LOSS [None]
